FAERS Safety Report 6620439-3 (Version None)
Quarter: 2010Q1

REPORT INFORMATION
  Report Type: 
  Country: None (occurrence: None)
  Receive Date: 20100309
  Receipt Date: 20100225
  Transmission Date: 20100710
  Serious: Yes (Other)
  Sender: FDA-Public Use
  Company Number: US-PFIZER INC-2009314256

PATIENT
  Sex: Female
  Weight: 63.039 kg

DRUGS (7)
  1. ZOLOFT [Suspect]
     Indication: ANXIETY
     Dosage: 25 MG, 1X/DAY
     Dates: start: 20091211, end: 20091214
  2. NITROFURANTOIN [Concomitant]
     Indication: URINARY TRACT INFECTION
     Dosage: 100 MG, 2X/DAY
     Dates: start: 20091201
  3. METHENAMINE [Concomitant]
     Indication: URINARY TRACT INFECTION
     Dosage: UNK
     Dates: start: 20091201
  4. SODIUM BIPHOSPHATE [Concomitant]
     Indication: URINARY TRACT INFECTION
     Dosage: UNK
     Dates: start: 20091201
  5. PHENYL SALICYLATE [Concomitant]
     Indication: URINARY TRACT INFECTION
     Dosage: UNK
     Dates: start: 20091201
  6. METHYLENE BLUE [Concomitant]
     Indication: URINARY TRACT INFECTION
     Dosage: UNK
     Dates: start: 20091201
  7. HYOSCYAMINE SULFATE [Concomitant]
     Indication: URINARY TRACT INFECTION
     Dosage: UNK
     Dates: start: 20091201

REACTIONS (10)
  - ANXIETY [None]
  - ARTHRALGIA [None]
  - ARTHROPATHY [None]
  - DISCOMFORT [None]
  - MUSCULAR WEAKNESS [None]
  - MYDRIASIS [None]
  - PANIC DISORDER [None]
  - SEROTONIN SYNDROME [None]
  - VISION BLURRED [None]
  - VISUAL IMPAIRMENT [None]
